FAERS Safety Report 9236653 (Version 3)
Quarter: 2013Q2

REPORT INFORMATION
  Report Type: Report from Study
  Country: US (occurrence: US)
  Receive Date: 20130417
  Receipt Date: 20130530
  Transmission Date: 20140414
  Serious: Yes (Other)
  Sender: FDA-Public Use
  Company Number: US-ROCHE-1212613

PATIENT
  Age: 49 Year
  Sex: Female

DRUGS (4)
  1. RANIBIZUMAB [Suspect]
     Indication: AGE-RELATED MACULAR DEGENERATION
     Route: 050
  2. RANIBIZUMAB [Suspect]
     Indication: OFF LABEL USE
  3. BEVACIZUMAB [Suspect]
     Indication: AGE-RELATED MACULAR DEGENERATION
     Route: 050
  4. BEVACIZUMAB [Suspect]
     Indication: OFF LABEL USE

REACTIONS (3)
  - Detachment of retinal pigment epithelium [Recovered/Resolved]
  - Retinal oedema [Recovered/Resolved]
  - Visual acuity reduced [Recovered/Resolved]
